FAERS Safety Report 20104188 (Version 3)
Quarter: 2022Q4

REPORT INFORMATION
  Report Type: Spontaneous
  Country: US (occurrence: US)
  Receive Date: 20211123
  Receipt Date: 20221115
  Transmission Date: 20230112
  Serious: No
  Sender: FDA-Public Use
  Company Number: US-AMNEAL PHARMACEUTICALS-2021-AMRX-03616

PATIENT
  Sex: Male

DRUGS (4)
  1. ISOTRETINOIN [Suspect]
     Active Substance: ISOTRETINOIN
     Indication: Acne
     Dosage: 20 MILLIGRAM, DAILY
     Route: 065
     Dates: start: 20210524, end: 2021
  2. ISOTRETINOIN [Suspect]
     Active Substance: ISOTRETINOIN
     Dosage: 30 MG, DAILY
     Route: 065
     Dates: start: 2021, end: 2021
  3. ISOTRETINOIN [Suspect]
     Active Substance: ISOTRETINOIN
     Dosage: 40 MG, DAILY
     Route: 065
     Dates: start: 20210726, end: 20210830
  4. FINASTERIDE [Concomitant]
     Active Substance: FINASTERIDE
     Indication: Androgenetic alopecia
     Dosage: UNK, DAILY
     Route: 065

REACTIONS (1)
  - Mood swings [Unknown]
